FAERS Safety Report 8383602-X (Version None)
Quarter: 2012Q2

REPORT INFORMATION
  Report Type: 
  Country: None (occurrence: None)
  Receive Date: 20120524
  Receipt Date: 20120521
  Transmission Date: 20120825
  Serious: Yes (Other)
  Sender: FDA-Public Use
  Company Number: US-PFIZER INC-2012090360

PATIENT
  Sex: Female

DRUGS (1)
  1. ACCUPRIL [Suspect]
     Dosage: 20 MG, 1X/DAY
     Dates: start: 20020101

REACTIONS (1)
  - CAROTID ARTERY DISEASE [None]
